FAERS Safety Report 24361580 (Version 1)
Quarter: 2024Q3

REPORT INFORMATION
  Report Type: Other
  Country: FR (occurrence: FR)
  Receive Date: 20240925
  Receipt Date: 20240925
  Transmission Date: 20241017
  Serious: Yes (Death)
  Sender: APPCO PHARMA
  Company Number: FR-Appco Pharma LLC-2162026

PATIENT
  Age: 55 Year
  Sex: Female

DRUGS (7)
  1. DOXEPIN [Suspect]
     Active Substance: DOXEPIN
     Indication: Completed suicide
  2. OXYCODONE HYDROCHLORIDE [Suspect]
     Active Substance: OXYCODONE HYDROCHLORIDE
  3. ZOPICLONE [Concomitant]
     Active Substance: ZOPICLONE
  4. DULOXETINE [Concomitant]
     Active Substance: DULOXETINE
  5. PRAZEPAM [Concomitant]
     Active Substance: PRAZEPAM
  6. ALPRAZOLAM [Concomitant]
     Active Substance: ALPRAZOLAM
  7. TRAMADOL [Suspect]
     Active Substance: TRAMADOL

REACTIONS (2)
  - Bezoar [Fatal]
  - Toxicity to various agents [Fatal]
